FAERS Safety Report 7642423-3 (Version None)
Quarter: 2011Q3

REPORT INFORMATION
  Report Type: 
  Country: None (occurrence: None)
  Receive Date: 20110728
  Receipt Date: 20101112
  Transmission Date: 20111222
  Serious: No
  Sender: FDA-Public Use
  Company Number: US-MYLANLABS-2010S1020851

PATIENT
  Age: 54 Year
  Sex: Female

DRUGS (8)
  1. GLUCOSAMINE [Concomitant]
  2. LEVOTHYROXINE SODIUM [Suspect]
     Indication: HYPOTHYROIDISM
     Route: 048
     Dates: start: 20070101
  3. HYDROCHLOROTHIAZIDE [Concomitant]
  4. AMITRIPTYLINE HCL [Concomitant]
     Dosage: PATIENT TAKES 25MG TABLET AND 10MG TABLET HS
     Route: 048
  5. NAPROXEN (ALEVE) [Concomitant]
  6. FIORINAL W/CODEINE [Concomitant]
  7. POTASSIUM [Concomitant]
  8. CRESTOR [Concomitant]

REACTIONS (1)
  - MIGRAINE [None]
